FAERS Safety Report 5052107-6 (Version None)
Quarter: 2006Q3

REPORT INFORMATION
  Report Type: 
  Country: None (occurrence: None)
  Receive Date: 20060711
  Receipt Date: 20060623
  Transmission Date: 20061208
  Serious: No
  Sender: FDA-Public Use
  Company Number: DK200606004951

PATIENT
  Age: 58 Year
  Sex: Male
  Weight: 73 kg

DRUGS (4)
  1. OLANZAPINE [Suspect]
     Indication: ANXIETY
     Dosage: SEE IMAGE
     Route: 048
     Dates: start: 20051201
  2. OLANZAPINE [Suspect]
     Indication: ANXIETY
     Dosage: SEE IMAGE
     Route: 048
     Dates: start: 20060401
  3. CITALOPRAM HYDROBROMIDE [Concomitant]
  4. FLUPENTIXOL DIHYDROCHLORIDE (FLUPENTIXOL DIHYDROCHLORIDE) [Concomitant]

REACTIONS (3)
  - FATIGUE [None]
  - WEIGHT INCREASED [None]
  - WHITE BLOOD CELL COUNT INCREASED [None]
